FAERS Safety Report 9919738 (Version 3)
Quarter: 2014Q1

REPORT INFORMATION
  Report Type: Spontaneous
  Country: CA (occurrence: CA)
  Receive Date: 20140224
  Receipt Date: 20140331
  Transmission Date: 20141002
  Serious: Yes (Other)
  Sender: FDA-Public Use
  Company Number: CA-GLAXOSMITHKLINE-A1025259A

PATIENT
  Age: 54 Year
  Sex: Female

DRUGS (7)
  1. TYKERB [Suspect]
     Indication: BREAST CANCER METASTATIC
     Dosage: 1250MG PER DAY
     Route: 048
     Dates: start: 20130518, end: 201402
  2. XELODA [Suspect]
     Indication: BREAST CANCER METASTATIC
     Dosage: 1500MG TWICE PER DAY
     Route: 048
     Dates: start: 20130516, end: 201308
  3. HERCEPTIN [Suspect]
     Indication: BREAST CANCER METASTATIC
     Route: 065
     Dates: start: 200504, end: 201302
  4. KADCYLA [Suspect]
  5. CALCIUM CARBONATE [Concomitant]
  6. VITAMIN D [Concomitant]
  7. CHEMOTHERAPY [Concomitant]

REACTIONS (28)
  - Metastases to lymph nodes [Unknown]
  - Erythema [Not Recovered/Not Resolved]
  - Constipation [Not Recovered/Not Resolved]
  - Diarrhoea [Unknown]
  - Photosensitivity reaction [Unknown]
  - Rash erythematous [Unknown]
  - Feeling hot [Unknown]
  - Decreased appetite [Unknown]
  - Weight decreased [Unknown]
  - Therapeutic response unexpected [Unknown]
  - Ocular hyperaemia [Unknown]
  - Lacrimation increased [Unknown]
  - Hyperaesthesia [Unknown]
  - Pruritus [Unknown]
  - Headache [Unknown]
  - Abdominal symptom [Unknown]
  - Fatigue [Not Recovered/Not Resolved]
  - Inflammation [Unknown]
  - Sensation of blood flow [Unknown]
  - Dry skin [Unknown]
  - Abdominal pain [Unknown]
  - Gastrointestinal disorder [Unknown]
  - Infection [Unknown]
  - Lymphadenopathy [Unknown]
  - Gait disturbance [Unknown]
  - Paraesthesia [Recovering/Resolving]
  - Increased appetite [Unknown]
  - Tinnitus [Recovered/Resolved]
